FAERS Safety Report 8300660-9 (Version None)
Quarter: 2012Q2

REPORT INFORMATION
  Report Type: 
  Country: None (occurrence: None)
  Receive Date: 20120420
  Receipt Date: 20120410
  Transmission Date: 20120825
  Serious: Yes (Hospitalization)
  Sender: FDA-Public Use
  Company Number: PHHY2012KR009614

PATIENT
  Sex: Male

DRUGS (2)
  1. EXJADE [Suspect]
     Indication: APLASTIC ANAEMIA
  2. EXJADE [Suspect]
     Indication: IRON OVERLOAD
     Dosage: 500 MG, UNK
     Route: 048
     Dates: start: 20111119

REACTIONS (3)
  - PNEUMONIA [None]
  - HAEMOGLOBIN DECREASED [None]
  - DECREASED APPETITE [None]
